FAERS Safety Report 7190779-0 (Version None)
Quarter: 2010Q4

REPORT INFORMATION
  Report Type: 
  Country: None (occurrence: None)
  Receive Date: 20101223
  Receipt Date: 20101216
  Transmission Date: 20110411
  Serious: Yes (Other)
  Sender: FDA-Public Use
  Company Number: GB-ROCHE-748776

PATIENT
  Sex: Male

DRUGS (2)
  1. AVASTIN [Suspect]
     Route: 065
  2. CAPECITABINE [Suspect]
     Route: 065

REACTIONS (2)
  - DIARRHOEA [None]
  - INTESTINAL ISCHAEMIA [None]
